FAERS Safety Report 5445029-X (Version None)
Quarter: 2007Q3

REPORT INFORMATION
  Report Type: 
  Country: None (occurrence: None)
  Receive Date: 20070906
  Receipt Date: 20070828
  Transmission Date: 20080115
  Serious: Yes (Hospitalization)
  Sender: FDA-Public Use
  Company Number: HQWYE898729AUG07

PATIENT
  Sex: Male
  Weight: 56.3 kg

DRUGS (4)
  1. TORISEL [Suspect]
     Indication: METASTATIC RENAL CELL CARCINOMA
     Dosage: 25 MG WEEKLY
     Route: 042
     Dates: start: 20070726, end: 20070803
  2. MEGACE [Concomitant]
     Route: 048
  3. ZOMETA [Concomitant]
     Indication: METASTASIS
     Route: 042
     Dates: start: 20061201
  4. OXYCONTIN [Concomitant]
     Indication: PAIN
     Route: 048

REACTIONS (1)
  - HYPOGLYCAEMIA [None]
